FAERS Safety Report 9269818 (Version 1)
Quarter: 2013Q2

REPORT INFORMATION
  Report Type: Report from Study
  Country: TR (occurrence: TR)
  Receive Date: 20130503
  Receipt Date: 20130503
  Transmission Date: 20140414
  Serious: Yes (Hospitalization)
  Sender: FDA-Public Use
  Company Number: TR-US-EMD SERONO, INC.-7208724

PATIENT
  Sex: Male
  Weight: 62 kg

DRUGS (1)
  1. REBIF [Suspect]
     Indication: MULTIPLE SCLEROSIS
     Route: 058
     Dates: start: 201105, end: 201304

REACTIONS (3)
  - Hearing impaired [Recovering/Resolving]
  - Diplopia [Recovering/Resolving]
  - Muscular weakness [Recovering/Resolving]
